FAERS Safety Report 4692179-1 (Version None)
Quarter: 2005Q2

REPORT INFORMATION
  Report Type: 
  Country: None (occurrence: None)
  Receive Date: 20050614
  Receipt Date: 20050131
  Transmission Date: 20051028
  Serious: Yes (Hospitalization)
  Sender: FDA-Public Use
  Company Number: 8010826

PATIENT
  Age: 8 Year
  Sex: Male

DRUGS (7)
  1. KEPPRA [Suspect]
     Indication: CONVULSION
     Dosage: 250 MG 2/D PO
     Route: 048
     Dates: start: 20020215
  2. KEPPRA [Suspect]
     Indication: CONVULSION
     Dosage: 500 MG 2/D PO
     Route: 048
     Dates: start: 20020223
  3. KEPPRA [Suspect]
     Indication: CONVULSION
     Dosage: 750 MG 2/D PO
     Route: 048
     Dates: start: 20020301, end: 20020601
  4. KEPPRA [Suspect]
     Indication: CONVULSION
     Dosage: D PO
     Route: 048
     Dates: start: 20020613
  5. KEPPRA [Suspect]
     Indication: CONVULSION
     Dosage: 1250 MG 2/D PO
     Route: 048
     Dates: start: 20041215
  6. SULTIAME [Concomitant]
  7. OXCARBAZEPINE [Concomitant]

REACTIONS (3)
  - AGGRESSION [None]
  - DRUG EFFECT DECREASED [None]
  - PSYCHOMOTOR HYPERACTIVITY [None]
